FAERS Safety Report 14788665 (Version 2)
Quarter: 2018Q2

REPORT INFORMATION
  Report Type: Spontaneous
  Country: GB (occurrence: GB)
  Receive Date: 20180423
  Receipt Date: 20180425
  Transmission Date: 20180711
  Serious: Yes (Other)
  Sender: FDA-Public Use
  Company Number: GB-ORION CORPORATION ORION PHARMA-TREX2018-1130

PATIENT
  Age: 47 Year
  Sex: Female

DRUGS (2)
  1. METHOTREXATE. [Suspect]
     Active Substance: METHOTREXATE
     Indication: PSORIASIS
     Route: 065
     Dates: start: 197903
  2. RAZOXANE [Suspect]
     Active Substance: DEXRAZOXANE
     Indication: PSORIASIS
     Dosage: 625-1125 MG
     Route: 065
     Dates: start: 198011

REACTIONS (1)
  - Acute promyelocytic leukaemia [Unknown]
